FAERS Safety Report 18139534 (Version 2)
Quarter: 2020Q4

REPORT INFORMATION
  Report Type: Spontaneous
  Country: US (occurrence: US)
  Receive Date: 20200812
  Receipt Date: 20201218
  Transmission Date: 20210113
  Serious: No
  Sender: FDA-Public Use
  Company Number: US-PFIZER INC-2020304941

PATIENT
  Age: 54 Year
  Sex: Male

DRUGS (1)
  1. XELJANZ [Suspect]
     Active Substance: TOFACITINIB CITRATE
     Dosage: 10 MG, 2X/DAY
     Dates: start: 20200609, end: 20201216

REACTIONS (4)
  - Defaecation urgency [Not Recovered/Not Resolved]
  - Gastrointestinal motility disorder [Unknown]
  - Abdominal pain [Unknown]
  - Product use issue [Unknown]
